FAERS Safety Report 8558161-9 (Version None)
Quarter: 2012Q3

REPORT INFORMATION
  Report Type: 
  Country: None (occurrence: None)
  Receive Date: 20120801
  Receipt Date: 20120725
  Transmission Date: 20120928
  Serious: Yes (Hospitalization)
  Sender: FDA-Public Use
  Company Number: DE-ABBOTT-12P-062-0960407-00

PATIENT
  Sex: Female

DRUGS (1)
  1. HUMIRA [Suspect]
     Indication: PRODUCT USED FOR UNKNOWN INDICATION
     Route: 058
     Dates: start: 20080101, end: 20120315

REACTIONS (4)
  - HEPATIC ENZYME INCREASED [None]
  - INFLAMMATORY MARKER INCREASED [None]
  - HEPATOMEGALY [None]
  - GENERAL PHYSICAL HEALTH DETERIORATION [None]
